FAERS Safety Report 8420851 (Version 5)
Quarter: 2013Q1

REPORT INFORMATION
  Report Type: Report from Study
  Country: US (occurrence: US)
  Receive Date: 20120222
  Receipt Date: 20130304
  Transmission Date: 20140127
  Serious: Yes (Hospitalization)
  Sender: FDA-Public Use
  Company Number: PHHO2012US001741

PATIENT
  Age: 72 Year
  Sex: Male
  Weight: 127.53 kg

DRUGS (4)
  1. AIN457 [Suspect]
     Indication: PSORIASIS
     Dosage: DOSE BLINDED
     Route: 058
     Dates: start: 20101004
  2. ATENOLOL [Suspect]
     Indication: HYPERTENSION
     Dosage: 150 MG, QD
     Route: 048
     Dates: start: 20100930
  3. LISINOPRIL [Suspect]
     Indication: HYPERTENSION
     Dosage: 10 MG, QD
     Route: 048
     Dates: start: 20101202
  4. TRIAMTERENE [Suspect]
     Indication: HYPERTENSION
     Dosage: 37.5 MG, QD
     Route: 048
     Dates: start: 20100929

REACTIONS (4)
  - Syncope [Recovered/Resolved]
  - Dizziness [Unknown]
  - Nausea [Unknown]
  - Fibrin D dimer increased [Recovered/Resolved]
